FAERS Safety Report 6098224-3 (Version None)
Quarter: 2009Q1

REPORT INFORMATION
  Report Type: 
  Country: None (occurrence: None)
  Receive Date: 20090227
  Receipt Date: 20090225
  Transmission Date: 20090719
  Serious: Yes (Hospitalization)
  Sender: FDA-Public Use
  Company Number: US-ABBOTT-09P-163-0559168-00

PATIENT
  Sex: Female
  Weight: 65.376 kg

DRUGS (7)
  1. HUMIRA [Suspect]
     Indication: RHEUMATOID ARTHRITIS
     Dates: start: 20030101
  2. HUMIRA [Suspect]
  3. CALCIUM [Concomitant]
     Indication: DRUG USE FOR UNKNOWN INDICATION
  4. SOBITAL [Concomitant]
     Indication: BLOOD PRESSURE
  5. LOVASTATIN [Concomitant]
     Indication: DRUG USE FOR UNKNOWN INDICATION
  6. COUMADIN [Concomitant]
     Indication: DRUG USE FOR UNKNOWN INDICATION
     Dosage: PTT DEPENDENT
  7. DIABETES [Concomitant]
     Indication: DIABETES MELLITUS

REACTIONS (2)
  - ARRHYTHMIA [None]
  - PHARYNGEAL OPERATION [None]
